FAERS Safety Report 6601591-2 (Version None)
Quarter: 2010Q1

REPORT INFORMATION
  Report Type: 
  Country: None (occurrence: None)
  Receive Date: 20100225
  Receipt Date: 20100112
  Transmission Date: 20100710
  Serious: No
  Sender: FDA-Public Use
  Company Number: US-KINGPHARMUSA00001-K201000040

PATIENT
  Sex: Female

DRUGS (3)
  1. FLECTOR [Suspect]
     Indication: NECK PAIN
     Dosage: UNK, PRN
     Route: 061
  2. FLECTOR [Suspect]
     Indication: BACK PAIN
  3. ACE HOT AND COLD COMPRESS [Suspect]
     Dosage: UNK
     Dates: end: 20100112

REACTIONS (2)
  - APPLICATION SITE ERYTHEMA [None]
  - APPLICATION SITE PAIN [None]
